FAERS Safety Report 8794290 (Version 1)
Quarter: 2012Q4

REPORT INFORMATION
  Report Type: 
  Country: US (occurrence: US)
  Receive Date: 20120918
  Receipt Date: 20120918
  Transmission Date: 20130627
  Serious: Yes (Hospitalization)
  Sender: FDA-Public Use
  Company Number: US-009507513-1209USA005699

PATIENT

DRUGS (1)
  1. SAPHRIS [Suspect]
     Route: 060

REACTIONS (6)
  - Lobar pneumonia [Unknown]
  - Pyrexia [Unknown]
  - Haemoptysis [Unknown]
  - Pulmonary haemorrhage [Unknown]
  - Dyspnoea [Unknown]
  - Chills [Unknown]
